FAERS Safety Report 9684020 (Version 1)
Quarter: 2013Q4

REPORT INFORMATION
  Report Type: Spontaneous
  Country: CH (occurrence: CH)
  Receive Date: 20131112
  Receipt Date: 20131112
  Transmission Date: 20140711
  Serious: Yes (Hospitalization)
  Sender: FDA-Public Use
  Company Number: CH-PFIZER INC-2013322056

PATIENT
  Age: 68 Year
  Sex: Male

DRUGS (7)
  1. CORDARONE [Suspect]
     Dosage: 100 MG, DAILY
     Route: 048
     Dates: start: 20130722, end: 20130728
  2. CORDARONE [Interacting]
     Dosage: 200 MG, DAILY
     Route: 048
     Dates: start: 20130729
  3. PRADAXA [Interacting]
     Dosage: 110 MG, DAILY
     Route: 048
     Dates: start: 20130821
  4. MARCOUMAR [Interacting]
     Dosage: UNK
     Route: 048
     Dates: end: 20130819
  5. ELTROXIN [Concomitant]
     Dosage: UNK
  6. MICARDIS [Concomitant]
     Dosage: UNK
  7. BELOC [Concomitant]
     Dosage: UNK

REACTIONS (2)
  - Drug interaction [Unknown]
  - Haemorrhage urinary tract [Unknown]
